APPROVED DRUG PRODUCT: PHENTERMINE HYDROCHLORIDE
Active Ingredient: PHENTERMINE HYDROCHLORIDE
Strength: 30MG
Dosage Form/Route: CAPSULE;ORAL
Application: A088614 | Product #001
Applicant: TEVA PHARMACEUTICALS USA INC
Approved: Apr 9, 1984 | RLD: No | RS: No | Type: DISCN